FAERS Safety Report 12421335 (Version 1)
Quarter: 2016Q2

REPORT INFORMATION
  Report Type: Spontaneous
  Country: None (occurrence: US)
  Receive Date: 20160531
  Receipt Date: 20160531
  Transmission Date: 20160815
  Serious: No
  Sender: FDA-Public Use
  Company Number: US-MDT-ADR-2016-00260

PATIENT
  Age: 33 Year

DRUGS (6)
  1. VITAMIN D [Suspect]
     Active Substance: CHOLECALCIFEROL
  2. IBUPROFEN. [Suspect]
     Active Substance: IBUPROFEN
  3. TECFIDERA [Suspect]
     Active Substance: DIMETHYL FUMARATE
  4. BACLOFEN. [Suspect]
     Active Substance: BACLOFEN
  5. GABAPENTIN. [Suspect]
     Active Substance: GABAPENTIN
  6. PROZAC [Suspect]
     Active Substance: FLUOXETINE HYDROCHLORIDE

REACTIONS (1)
  - Therapeutic response decreased [Unknown]
